FAERS Safety Report 10197970 (Version 1)
Quarter: 2014Q2

REPORT INFORMATION
  Report Type: Spontaneous
  Country: IT (occurrence: IT)
  Receive Date: 20140527
  Receipt Date: 20140527
  Transmission Date: 20141212
  Serious: Yes (Life-Threatening, Hospitalization, Disabling)
  Sender: FDA-Public Use
  Company Number: IT-WATSON-2014-11231

PATIENT
  Age: 36 Year
  Sex: Male

DRUGS (1)
  1. TOPIRAMATE (UNKNOWN) [Suspect]
     Indication: EPILEPSY
     Dosage: 200 MG, DAILY
     Route: 065

REACTIONS (14)
  - Heat stroke [Recovered/Resolved with Sequelae]
  - Metabolic acidosis [Recovered/Resolved]
  - Hyperkalaemia [Recovered/Resolved]
  - Platelet count decreased [Recovered/Resolved]
  - Hypertonia [Recovered/Resolved]
  - Myoclonus [Recovered/Resolved]
  - Gaze palsy [Recovered/Resolved]
  - Muscle rigidity [Recovered/Resolved]
  - Nystagmus [Recovered/Resolved]
  - Hypertension [Recovered/Resolved]
  - Tachycardia [Recovered/Resolved]
  - Tachypnoea [Recovered/Resolved]
  - Quadriparesis [Recovered/Resolved]
  - Cerebellar ataxia [Recovered/Resolved with Sequelae]
